FAERS Safety Report 5402636-8 (Version None)
Quarter: 2007Q3

REPORT INFORMATION
  Report Type: 
  Country: None (occurrence: None)
  Receive Date: 20070801
  Receipt Date: 20070731
  Transmission Date: 20080115
  Serious: Yes (Disabling)
  Sender: FDA-Public Use
  Company Number: US-BRISTOL-MYERS SQUIBB COMPANY-13839998

PATIENT
  Age: 80 Year
  Sex: Female
  Weight: 50 kg

DRUGS (3)
  1. TEQUIN [Suspect]
     Indication: CYSTITIS
     Route: 048
     Dates: start: 20050726, end: 20050730
  2. LEVOTHYROXINE SODIUM [Concomitant]
  3. TYLENOL (CAPLET) [Concomitant]

REACTIONS (8)
  - AMNESIA [None]
  - BACK PAIN [None]
  - BALANCE DISORDER [None]
  - CONFUSIONAL STATE [None]
  - DIZZINESS [None]
  - FEELING ABNORMAL [None]
  - GAIT DISTURBANCE [None]
  - MUSCLE SPASMS [None]
